FAERS Safety Report 10182645 (Version 1)
Quarter: 2014Q2

REPORT INFORMATION
  Report Type: Spontaneous
  Country: US (occurrence: None)
  Receive Date: 20140519
  Receipt Date: 20140519
  Transmission Date: 20141212
  Serious: Yes (Hospitalization)
  Sender: FDA-Public Use
  Company Number: None

PATIENT
  Age: 76 Year
  Sex: Male

DRUGS (2)
  1. ENOXAPARIN 100 MG [Suspect]
     Indication: DEEP VEIN THROMBOSIS
     Dosage: 100 MG, BID, SUB Q
     Route: 058
     Dates: start: 20140508
  2. ENOXAPARIN 100 MG [Suspect]
     Indication: DEEP VEIN THROMBOSIS
     Dosage: 100 MG, BID, SUB Q
     Route: 058
     Dates: start: 20140508

REACTIONS (1)
  - Investigation [None]
